FAERS Safety Report 19388254 (Version 2)
Quarter: 2021Q2

REPORT INFORMATION
  Report Type: Report from Study
  Country: US (occurrence: US)
  Receive Date: 20210608
  Receipt Date: 20210615
  Transmission Date: 20210717
  Serious: Yes (Hospitalization)
  Sender: FDA-Public Use
  Company Number: US-GLAXOSMITHKLINE-US2021GSK121191

PATIENT
  Age: 72 Year
  Sex: Female
  Weight: 68.75 kg

DRUGS (17)
  1. BLINDED NIRAPARIB [Suspect]
     Active Substance: NIRAPARIB
     Indication: OVARIAN EPITHELIAL CANCER
     Dosage: UNK
  2. PLACEBO [Suspect]
     Active Substance: UNSPECIFIED INGREDIENT
     Indication: OVARIAN EPITHELIAL CANCER
     Dosage: UNK
  3. DOSTARLIMAB/PLACEBO [Suspect]
     Active Substance: DOSTARLIMAB
     Indication: OVARIAN EPITHELIAL CANCER
     Dosage: 500 MG
     Dates: start: 20200811, end: 20200811
  4. CARBOPLATIN. [Suspect]
     Active Substance: CARBOPLATIN
     Dosage: 6 AUC
     Route: 042
     Dates: start: 20201103, end: 20201103
  5. PACLITAXEL. [Suspect]
     Active Substance: PACLITAXEL
     Dosage: 290 MG
     Route: 042
     Dates: start: 20201103, end: 20201103
  6. PLACEBO [Suspect]
     Active Substance: UNSPECIFIED INGREDIENT
     Dosage: UNK
     Dates: start: 20210531
  7. PLACEBO [Suspect]
     Active Substance: UNSPECIFIED INGREDIENT
     Dosage: UNK
     Dates: start: 20210531
  8. BLINDED NIRAPARIB [Suspect]
     Active Substance: NIRAPARIB
     Dosage: UNK
     Dates: start: 20210531
  9. DOSTARLIMAB/PLACEBO [Suspect]
     Active Substance: DOSTARLIMAB
     Dosage: 1000 MG
     Dates: start: 20210511, end: 20210511
  10. CARBOPLATIN. [Suspect]
     Active Substance: CARBOPLATIN
     Indication: OVARIAN EPITHELIAL CANCER
     Dosage: 6 AUC
     Route: 042
     Dates: start: 20200721, end: 20200721
  11. PACLITAXEL. [Suspect]
     Active Substance: PACLITAXEL
     Indication: OVARIAN EPITHELIAL CANCER
     Dosage: 290 MG
     Route: 042
     Dates: start: 20200721, end: 20200721
  12. DOCETAXEL. [Concomitant]
     Active Substance: DOCETAXEL
  13. PLACEBO [Suspect]
     Active Substance: UNSPECIFIED INGREDIENT
     Indication: OVARIAN EPITHELIAL CANCER
     Dosage: UNK
  14. BLINDED DOSTARLIMAB [Suspect]
     Active Substance: DOSTARLIMAB
     Dosage: UNK
     Dates: start: 20210531
  15. BEVACIZUMAB. [Suspect]
     Active Substance: BEVACIZUMAB
     Indication: OVARIAN EPITHELIAL CANCER
     Route: 042
  16. CISPLATIN. [Concomitant]
     Active Substance: CISPLATIN
  17. BLINDED DOSTARLIMAB [Suspect]
     Active Substance: DOSTARLIMAB
     Indication: OVARIAN EPITHELIAL CANCER
     Dosage: UNK

REACTIONS (1)
  - Colitis [Not Recovered/Not Resolved]

NARRATIVE: CASE EVENT DATE: 20210602
